FAERS Safety Report 16039055 (Version 1)
Quarter: 2019Q1

REPORT INFORMATION
  Report Type: Spontaneous
  Country: TH (occurrence: TH)
  Receive Date: 20190306
  Receipt Date: 20190306
  Transmission Date: 20190418
  Serious: Yes (Other)
  Sender: FDA-Public Use
  Company Number: PHHY2019TH046504

PATIENT
  Age: 69 Year
  Sex: Female

DRUGS (2)
  1. DABRAFENIB [Suspect]
     Active Substance: DABRAFENIB
     Indication: MALIGNANT MELANOMA STAGE IV
     Dosage: 150 MG, UNK
     Route: 065
     Dates: start: 20180605
  2. TRAMETINIB [Suspect]
     Active Substance: TRAMETINIB
     Indication: MALIGNANT MELANOMA STAGE IV
     Dosage: 2 MG, QD
     Route: 065
     Dates: start: 20180605

REACTIONS (10)
  - Femur fracture [Recovered/Resolved]
  - Pyrexia [Recovered/Resolved]
  - Vomiting [Recovered/Resolved]
  - Chills [Unknown]
  - Nausea [Recovered/Resolved]
  - Fatigue [Unknown]
  - Weight increased [Unknown]
  - Malignant neoplasm progression [Unknown]
  - Decreased appetite [Unknown]
  - Malignant melanoma stage IV [Unknown]

NARRATIVE: CASE EVENT DATE: 20180718
